FAERS Safety Report 22043204 (Version 3)
Quarter: 2024Q2

REPORT INFORMATION
  Report Type: Report from Study
  Country: US (occurrence: US)
  Receive Date: 20230228
  Receipt Date: 20240408
  Transmission Date: 20240716
  Serious: No
  Sender: FDA-Public Use
  Company Number: US-KYOWAKIRIN-2023BKK002927

PATIENT

DRUGS (5)
  1. CRYSVITA [Suspect]
     Active Substance: BUROSUMAB-TWZA
     Indication: Hereditary hypophosphataemic rickets
     Dosage: 8 MG, 1X/2 WEEKS
     Route: 058
     Dates: start: 20211118
  2. CRYSVITA [Suspect]
     Active Substance: BUROSUMAB-TWZA
     Dosage: 10 MG, 1X/2 WEEKS
     Route: 058
     Dates: start: 20220531
  3. CRYSVITA [Concomitant]
     Active Substance: BUROSUMAB-TWZA
     Indication: Product used for unknown indication
     Dosage: UNK
     Route: 065
  4. VITAMINS NOS [Concomitant]
     Active Substance: VITAMINS
     Indication: Product used for unknown indication
     Dosage: UNK
     Route: 065
  5. PROBIOTICS NOS [Concomitant]
     Active Substance: PROBIOTICS NOS
     Indication: Product used for unknown indication
     Dosage: UNK
     Route: 065

REACTIONS (3)
  - Illness [Unknown]
  - Gastroenteritis viral [Unknown]
  - Product dose omission issue [Not Recovered/Not Resolved]

NARRATIVE: CASE EVENT DATE: 20230213
